FAERS Safety Report 25938038 (Version 1)
Quarter: 2025Q4

REPORT INFORMATION
  Report Type: Spontaneous
  Country: EU (occurrence: EU)
  Receive Date: 20251018
  Receipt Date: 20251018
  Transmission Date: 20260117
  Serious: Yes (Other)
  Sender: ACCORD
  Company Number: EU-MLMSERVICE-20251001-PI660261-00255-1

PATIENT
  Age: 78 Year
  Sex: Male

DRUGS (21)
  1. CARBOPLATIN [Suspect]
     Active Substance: CARBOPLATIN
     Indication: Follicular thyroid cancer
     Dosage: AUC 2 ON DAYS 2, 9 AND 16 EVERY 28 DAYS, 5 CYCLES
     Dates: start: 202202, end: 2022
  2. PACLITAXEL [Suspect]
     Active Substance: PACLITAXEL
     Indication: Follicular thyroid cancer
     Dosage: ON DAYS 1, 8 AND 15 EVERY 28 DAYS, 5 CYCLES
     Dates: start: 202202, end: 2022
  3. PEMBROLIZUMAB [Concomitant]
     Active Substance: PEMBROLIZUMAB
     Indication: Follicular thyroid cancer
     Dosage: EVERY 21 DAYS, 5 CYCLES
     Dates: start: 202202, end: 2022
  4. PEMBROLIZUMAB [Concomitant]
     Active Substance: PEMBROLIZUMAB
     Indication: Anaplastic thyroid cancer
     Dosage: EVERY 21 DAYS, 5 CYCLES
     Dates: start: 202202, end: 2022
  5. PACLITAXEL [Suspect]
     Active Substance: PACLITAXEL
     Indication: Metastases to spine
     Dosage: ON DAYS 1, 8 AND 15 EVERY 28 DAYS, 5 CYCLES
     Dates: start: 202202, end: 2022
  6. PEMBROLIZUMAB [Concomitant]
     Active Substance: PEMBROLIZUMAB
     Indication: Metastases to bone
     Dosage: EVERY 21 DAYS, 5 CYCLES
     Dates: start: 202202, end: 2022
  7. CARBOPLATIN [Suspect]
     Active Substance: CARBOPLATIN
     Indication: Metastases to bone
     Dosage: AUC 2 ON DAYS 2, 9 AND 16 EVERY 28 DAYS, 5 CYCLES
     Dates: start: 202202, end: 2022
  8. PACLITAXEL [Suspect]
     Active Substance: PACLITAXEL
     Indication: Metastases to bone
     Dosage: ON DAYS 1, 8 AND 15 EVERY 28 DAYS, 5 CYCLES
     Dates: start: 202202, end: 2022
  9. PACLITAXEL [Suspect]
     Active Substance: PACLITAXEL
     Indication: Metastases to pelvis
     Dosage: ON DAYS 1, 8 AND 15 EVERY 28 DAYS, 5 CYCLES
     Dates: start: 202202, end: 2022
  10. PACLITAXEL [Suspect]
     Active Substance: PACLITAXEL
     Indication: Metastases to lymph nodes
     Dosage: ON DAYS 1, 8 AND 15 EVERY 28 DAYS, 5 CYCLES
     Dates: start: 202202, end: 2022
  11. PACLITAXEL [Suspect]
     Active Substance: PACLITAXEL
     Indication: Metastases to lung
     Dosage: ON DAYS 1, 8 AND 15 EVERY 28 DAYS, 5 CYCLES
     Dates: start: 202202, end: 2022
  12. CARBOPLATIN [Suspect]
     Active Substance: CARBOPLATIN
     Indication: Metastases to lung
     Dosage: AUC 2 ON DAYS 2, 9 AND 16 EVERY 28 DAYS, 5 CYCLES
     Dates: start: 202202, end: 2022
  13. CARBOPLATIN [Suspect]
     Active Substance: CARBOPLATIN
     Indication: Metastases to spine
     Dosage: AUC 2 ON DAYS 2, 9 AND 16 EVERY 28 DAYS, 5 CYCLES
     Dates: start: 202202, end: 2022
  14. CARBOPLATIN [Suspect]
     Active Substance: CARBOPLATIN
     Indication: Metastases to pelvis
     Dosage: AUC 2 ON DAYS 2, 9 AND 16 EVERY 28 DAYS, 5 CYCLES
     Dates: start: 202202, end: 2022
  15. CARBOPLATIN [Suspect]
     Active Substance: CARBOPLATIN
     Indication: Metastases to lymph nodes
     Dosage: AUC 2 ON DAYS 2, 9 AND 16 EVERY 28 DAYS, 5 CYCLES
     Dates: start: 202202, end: 2022
  16. PEMBROLIZUMAB [Concomitant]
     Active Substance: PEMBROLIZUMAB
     Indication: Metastases to lung
     Dosage: EVERY 21 DAYS, 5 CYCLES
     Dates: start: 202202, end: 2022
  17. PEMBROLIZUMAB [Concomitant]
     Active Substance: PEMBROLIZUMAB
     Indication: Metastases to spine
     Dosage: EVERY 21 DAYS, 5 CYCLES
     Dates: start: 202202, end: 2022
  18. PEMBROLIZUMAB [Concomitant]
     Active Substance: PEMBROLIZUMAB
     Indication: Metastases to pelvis
     Dosage: EVERY 21 DAYS, 5 CYCLES
     Dates: start: 202202, end: 2022
  19. PEMBROLIZUMAB [Concomitant]
     Active Substance: PEMBROLIZUMAB
     Indication: Metastases to lymph nodes
     Dosage: EVERY 21 DAYS, 5 CYCLES
     Dates: start: 202202, end: 2022
  20. PACLITAXEL [Suspect]
     Active Substance: PACLITAXEL
     Indication: Anaplastic thyroid cancer
     Dosage: ON DAYS 1, 8 AND 15 EVERY 28 DAYS, 5 CYCLES
     Dates: start: 202202, end: 2022
  21. CARBOPLATIN [Suspect]
     Active Substance: CARBOPLATIN
     Indication: Anaplastic thyroid cancer
     Dosage: AUC 2 ON DAYS 2, 9 AND 16 EVERY 28 DAYS, 5 CYCLES
     Dates: start: 202202, end: 2022

REACTIONS (2)
  - Haematotoxicity [Unknown]
  - Off label use [Unknown]

NARRATIVE: CASE EVENT DATE: 20220101
